FAERS Safety Report 4945363-3 (Version None)
Quarter: 2006Q1

REPORT INFORMATION
  Report Type: 
  Country: None (occurrence: None)
  Receive Date: 20060315
  Receipt Date: 20060315
  Transmission Date: 20060701
  Serious: No
  Sender: FDA-Public Use
  Company Number: None

PATIENT
  Age: 64 Year
  Sex: Female

DRUGS (1)
  1. ATROVENT HFA [Suspect]
     Dosage: 2 PUFF 4 TIMES DAILY
     Dates: start: 20030201

REACTIONS (2)
  - CHEST PAIN [None]
  - THROAT IRRITATION [None]
